FAERS Safety Report 14514128 (Version 2)
Quarter: 2018Q1

REPORT INFORMATION
  Report Type: Spontaneous
  Country: HU (occurrence: HU)
  Receive Date: 20180209
  Receipt Date: 20180220
  Transmission Date: 20180509
  Serious: Yes (Other)
  Sender: FDA-Public Use
  Company Number: HU-BAYER-2018-027237

PATIENT
  Sex: Female

DRUGS (1)
  1. JAYDESS [Suspect]
     Active Substance: LEVONORGESTREL
     Dosage: 14 MCG/24HR, CONT
     Route: 015
     Dates: start: 20180131, end: 20180205

REACTIONS (5)
  - Vulvovaginal burning sensation [None]
  - Uterine inflammation [Recovered/Resolved]
  - Abdominal pain lower [Recovered/Resolved]
  - Uterine inflammation [None]
  - Pyrexia [Recovered/Resolved]

NARRATIVE: CASE EVENT DATE: 20180131
